FAERS Safety Report 7830105-4 (Version None)
Quarter: 2011Q4

REPORT INFORMATION
  Report Type: 
  Country: None (occurrence: None)
  Receive Date: 20111018
  Receipt Date: 20111005
  Transmission Date: 20120403
  Serious: Yes (Hospitalization, Other)
  Sender: FDA-Public Use
  Company Number: 1000024079

PATIENT
  Age: 4 Day
  Sex: Male

DRUGS (3)
  1. FOLIC ACID [Concomitant]
  2. CITALOPRAM HYDROBROMIDE [Suspect]
     Dosage: 40 MG (40 MG,1 IN 1 D),TRANSPLACENTAL ; 30 MG (30 MG,1 IN 1 D),TRANSPLACENTAL
     Route: 064
     Dates: start: 20100828
  3. CITALOPRAM HYDROBROMIDE [Suspect]
     Dosage: 40 MG (40 MG,1 IN 1 D),TRANSPLACENTAL ; 30 MG (30 MG,1 IN 1 D),TRANSPLACENTAL
     Route: 064
     Dates: end: 20110610

REACTIONS (5)
  - MATERNAL DRUGS AFFECTING FOETUS [None]
  - MECONIUM ABNORMAL [None]
  - MYOCLONUS [None]
  - C-REACTIVE PROTEIN INCREASED [None]
  - CONVULSION NEONATAL [None]
